FAERS Safety Report 4779687-X (Version None)
Quarter: 2005Q3

REPORT INFORMATION
  Report Type: 
  Country: None (occurrence: None)
  Receive Date: 20050927
  Receipt Date: 20050914
  Transmission Date: 20060218
  Serious: Yes (Other)
  Sender: FDA-Public Use
  Company Number: PHBS2005JP13579

PATIENT
  Sex: Male
  Weight: 4 kg

DRUGS (3)
  1. BROMOCRIPTINE MESYLATE [Suspect]
     Route: 064
  2. PENFILL R [Suspect]
     Route: 064
  3. PENFILL N [Suspect]
     Route: 064

REACTIONS (6)
  - BLOOD BILIRUBIN INCREASED [None]
  - BLOOD GLUCOSE DECREASED [None]
  - DRUG EXPOSURE DURING PREGNANCY [None]
  - HYPOGLYCAEMIA NEONATAL [None]
  - JAUNDICE [None]
  - JAUNDICE NEONATAL [None]
